FAERS Safety Report 7776207-2 (Version None)
Quarter: 2011Q3

REPORT INFORMATION
  Report Type: 
  Country: None (occurrence: None)
  Receive Date: 20110926
  Receipt Date: 20110922
  Transmission Date: 20111222
  Serious: Yes (Death)
  Sender: FDA-Public Use
  Company Number: US-PFIZER INC-2011202777

PATIENT
  Sex: Male

DRUGS (5)
  1. SUTENT [Suspect]
     Dosage: 37.5 MG, 1X/DAY, FOR 4 WEEKS ON/2 WEEKS OFF
     Route: 048
  2. OXYCONTIN [Concomitant]
     Dosage: 10 MG, UNK
  3. THALOMID [Concomitant]
     Dosage: 100 MG, UNK
  4. INTRON A [Concomitant]
     Dosage: 10MU
  5. DILAUDID [Concomitant]
     Dosage: 4 MG, UNK

REACTIONS (2)
  - DISEASE PROGRESSION [None]
  - NEOPLASM MALIGNANT [None]
